FAERS Safety Report 8989181 (Version 1)
Quarter: 2012Q4

REPORT INFORMATION
  Report Type: Report from Study
  Country: JP (occurrence: JP)
  Receive Date: 20121228
  Receipt Date: 20121228
  Transmission Date: 20130627
  Serious: Yes (Other)
  Sender: FDA-Public Use
  Company Number: JP-ASTELLAS-2012JP012097

PATIENT
  Sex: Male
  Weight: 86 kg

DRUGS (18)
  1. TACROLIMUS CAPSULES [Suspect]
     Indication: MYASTHENIA GRAVIS
     Dosage: 2 mg, Unknown/D
     Route: 048
     Dates: start: 20101208
  2. TACROLIMUS CAPSULES [Suspect]
     Dosage: 3 mg, Unknown/D
     Route: 048
     Dates: start: 20101213, end: 20101227
  3. PREDONINE                          /00016201/ [Concomitant]
     Indication: MYASTHENIA GRAVIS
     Dosage: 10 mg, Unknown/D
     Route: 048
     Dates: start: 20101118, end: 20101128
  4. PREDONINE                          /00016201/ [Concomitant]
     Dosage: 15 mg, Unknown/D
     Route: 048
     Dates: start: 20101129, end: 20101201
  5. PREDONINE                          /00016201/ [Concomitant]
     Dosage: 20 mg, Unknown/D
     Route: 048
     Dates: start: 20101202, end: 20101204
  6. PREDONINE                          /00016201/ [Concomitant]
     Dosage: 25 mg, Unknown/D
     Route: 048
     Dates: start: 20101205, end: 20101207
  7. PREDONINE                          /00016201/ [Concomitant]
     Dosage: 30 mg, Unknown/D
     Route: 048
     Dates: start: 20101208, end: 20101213
  8. PREDONINE                          /00016201/ [Concomitant]
     Dosage: 40 mg, Unknown/D
     Route: 048
     Dates: start: 20101214, end: 20101216
  9. PREDONINE                          /00016201/ [Concomitant]
     Dosage: 45 mg, Unknown/D
     Route: 048
     Dates: start: 20101217, end: 20101223
  10. PREDONINE                          /00016201/ [Concomitant]
     Dosage: 55 mg, Unknown/D
     Route: 048
     Dates: start: 20101224, end: 20101227
  11. PREDONINE                          /00016201/ [Concomitant]
     Dosage: 60 mg, Unknown/D
     Route: 048
     Dates: start: 20101228
  12. NEORAL [Concomitant]
     Indication: MYASTHENIA GRAVIS
     Dosage: 200 mg, Unknown/D
     Route: 048
     Dates: start: 20101228
  13. URSO                               /00465701/ [Concomitant]
     Indication: PROPHYLAXIS
     Dosage: UNK
     Route: 048
  14. PARIET [Concomitant]
     Indication: PROPHYLAXIS
     Dosage: UNK
     Route: 048
  15. NORVASC [Concomitant]
     Indication: PROPHYLAXIS
     Dosage: UNK
     Route: 048
  16. MYTELASE [Concomitant]
     Indication: PROPHYLAXIS
     Dosage: UNK
     Route: 048
  17. FOSAMAC [Concomitant]
     Indication: PROPHYLAXIS
     Dosage: UNK
     Route: 048
  18. EPADEL                             /01682401/ [Concomitant]
     Dosage: UNK
     Route: 048

REACTIONS (1)
  - Renal disorder [Recovering/Resolving]
